FAERS Safety Report 5474748-4 (Version None)
Quarter: 2007Q3

REPORT INFORMATION
  Report Type: 
  Country: None (occurrence: None)
  Receive Date: 20070928
  Receipt Date: 20070918
  Transmission Date: 20080115
  Serious: Yes (Hospitalization, Other)
  Sender: FDA-Public Use
  Company Number: 330001L07TWN

PATIENT
  Age: 36 Year
  Sex: Female

DRUGS (3)
  1. LUVERIS [Suspect]
     Indication: OVULATION INDUCTION
     Dosage: 75 IU, 1 IN 1 DAYS
     Dates: start: 20050910, end: 20050914
  2. PUREGON (FOLLITROPIN BETA) [Suspect]
     Indication: OVULATION INDUCTION
     Dosage: 200 IU, 1 IN 1 DAYS
     Dates: start: 20050903, end: 20050914
  3. BUSERELIN (BUSERELIN) [Concomitant]

REACTIONS (2)
  - LATERAL MEDULLARY SYNDROME [None]
  - OVARIAN ENLARGEMENT [None]
